FAERS Safety Report 9321414 (Version 3)
Quarter: 2013Q3

REPORT INFORMATION
  Report Type: Spontaneous
  Country: US (occurrence: US)
  Receive Date: 20130531
  Receipt Date: 20130725
  Transmission Date: 20140515
  Serious: Yes (Other)
  Sender: FDA-Public Use
  Company Number: US-PFIZER INC-2013163705

PATIENT
  Age: 83 Year
  Sex: Female

DRUGS (1)
  1. REVATIO [Suspect]
     Dosage: UNK

REACTIONS (2)
  - Cardiovascular disorder [Unknown]
  - Diarrhoea [Unknown]
